FAERS Safety Report 18331537 (Version 1)
Quarter: 2020Q3

REPORT INFORMATION
  Report Type: Spontaneous
  Country: PT (occurrence: PT)
  Receive Date: 20200930
  Receipt Date: 20200930
  Transmission Date: 20201103
  Serious: Yes (Hospitalization, Other)
  Sender: FDA-Public Use
  Company Number: PT-UCBSA-2020038157

PATIENT
  Age: 45 Year
  Sex: Female

DRUGS (23)
  1. CARBAMAZEPINE. [Concomitant]
     Active Substance: CARBAMAZEPINE
     Dosage: 1800 MILLIGRAM PER DAY
     Dates: start: 2011
  2. CARBAMAZEPINE. [Concomitant]
     Active Substance: CARBAMAZEPINE
     Dosage: 1800 MILLIGRAM PER DAY
     Dates: start: 2012
  3. CLOBAZAM. [Concomitant]
     Active Substance: CLOBAZAM
     Indication: SEIZURE
     Dosage: 20 MILLIGRAM PER DAY
     Dates: start: 2007
  4. CLOBAZAM. [Concomitant]
     Active Substance: CLOBAZAM
     Dosage: 40 MILLIGRAM PER DAY
     Dates: start: 2011
  5. CLOBAZAM. [Concomitant]
     Active Substance: CLOBAZAM
     Dosage: 40 MILLIGRAM PER DAY
     Dates: start: 2015
  6. RISPERIDONE. [Concomitant]
     Active Substance: RISPERIDONE
     Indication: PRODUCT USED FOR UNKNOWN INDICATION
     Dosage: 6 MILLIGRAM PER DAY
  7. ZOTEPINE [Concomitant]
     Active Substance: ZOTEPINE
     Indication: PRODUCT USED FOR UNKNOWN INDICATION
     Dosage: UNKNOWN DOSE
  8. LEVETIRACETAM. [Suspect]
     Active Substance: LEVETIRACETAM
     Indication: SEIZURE
     Dosage: 1000 MILLIGRAM PER DAY
     Dates: start: 2007
  9. LEVETIRACETAM. [Suspect]
     Active Substance: LEVETIRACETAM
     Dosage: 4000 MILLIGRAM PER DAY
     Dates: start: 2011
  10. CARBAMAZEPINE. [Concomitant]
     Active Substance: CARBAMAZEPINE
     Dosage: 1200 MILLIGRAM PER DAY
     Dates: start: 2009
  11. CLOBAZAM. [Concomitant]
     Active Substance: CLOBAZAM
     Dosage: 40 MILLIGRAM PER DAY
     Dates: start: 2012
  12. CLONAZEPAM. [Concomitant]
     Active Substance: CLONAZEPAM
     Indication: SEIZURE
     Dosage: 4 MILLIGRAM PER DAY
     Dates: start: 2012
  13. RISPERIDONE. [Concomitant]
     Active Substance: RISPERIDONE
     Dosage: 50 MG/ML
  14. LEVETIRACETAM. [Suspect]
     Active Substance: LEVETIRACETAM
     Dosage: 4000 MILLIGRAM PER DAY
     Dates: start: 2015
  15. CARBAMAZEPINE. [Concomitant]
     Active Substance: CARBAMAZEPINE
     Dosage: 1200 MILLIGRAM PER DAY
     Dates: start: 2010
  16. CARBAMAZEPINE. [Concomitant]
     Active Substance: CARBAMAZEPINE
     Dosage: 1200 MILLIGRAM PER DAY
     Dates: start: 2015
  17. CLOBAZAM. [Concomitant]
     Active Substance: CLOBAZAM
     Dosage: 40 MILLIGRAM PER DAY
     Dates: start: 2010
  18. LEVETIRACETAM. [Suspect]
     Active Substance: LEVETIRACETAM
     Dosage: 4000 MILLIGRAM PER DAY
     Dates: start: 2009
  19. CLONAZEPAM. [Concomitant]
     Active Substance: CLONAZEPAM
     Dosage: 4 MILLIGRAM PER DAY
     Dates: start: 2015
  20. CLOBAZAM. [Concomitant]
     Active Substance: CLOBAZAM
     Dosage: 20 MILLIGRAM PER DAY
     Dates: start: 2009
  21. LEVETIRACETAM. [Suspect]
     Active Substance: LEVETIRACETAM
     Dosage: 4000 MILLIGRAM PER DAY
     Dates: start: 2010
  22. LEVETIRACETAM. [Suspect]
     Active Substance: LEVETIRACETAM
     Dosage: 4000 MILLIGRAM PER DAY
     Dates: start: 2012
  23. CARBAMAZEPINE. [Concomitant]
     Active Substance: CARBAMAZEPINE
     Indication: SEIZURE
     Dosage: 1200 MILLIGRAM PER DAY
     Dates: start: 2007

REACTIONS (4)
  - Schizophrenia [Recovered/Resolved]
  - Prescribed overdose [Unknown]
  - Epilepsy [Unknown]
  - Drug ineffective [Unknown]

NARRATIVE: CASE EVENT DATE: 2009
